FAERS Safety Report 6784386-9 (Version None)
Quarter: 2010Q2

REPORT INFORMATION
  Report Type: 
  Country: None (occurrence: None)
  Receive Date: 20100622
  Receipt Date: 20100613
  Transmission Date: 20101027
  Serious: Yes (Hospitalization)
  Sender: FDA-Public Use
  Company Number: US-ASTRAZENECA-2010SE27719

PATIENT
  Age: 48 Year
  Sex: Male

DRUGS (8)
  1. SEROQUEL XR [Suspect]
     Dosage: DAILY
     Route: 048
     Dates: start: 20100223, end: 20100326
  2. SEROQUEL XR [Suspect]
     Route: 048
     Dates: start: 20100326
  3. ALPRAZOLAM [Concomitant]
  4. AMITRIPTYLINE [Concomitant]
  5. METOPROLOL TARTRATE [Concomitant]
  6. METFORMIN [Concomitant]
  7. NUVIGIL [Concomitant]
  8. SIMVASTATIN [Concomitant]

REACTIONS (1)
  - HAEMORRHAGE INTRACRANIAL [None]
